FAERS Safety Report 7938260-2 (Version None)
Quarter: 2011Q4

REPORT INFORMATION
  Report Type: 
  Country: None (occurrence: None)
  Receive Date: 20111123
  Receipt Date: 20111017
  Transmission Date: 20120403
  Serious: Yes (Hospitalization)
  Sender: FDA-Public Use
  Company Number: IT-ROCHE-785350

PATIENT
  Sex: Male
  Weight: 69 kg

DRUGS (5)
  1. XELODA [Suspect]
     Indication: COLORECTAL CANCER METASTATIC
     Route: 048
     Dates: start: 20100224, end: 20100324
  2. ASACOL [Concomitant]
     Indication: DIARRHOEA
     Dosage: 1600 MG DAILY
     Route: 048
  3. AVASTIN [Suspect]
     Indication: COLORECTAL CANCER METASTATIC
     Route: 042
     Dates: start: 20100224, end: 20100324
  4. IRINOTECAN HYDROCHLORIDE [Suspect]
     Indication: COLORECTAL CANCER METASTATIC
     Route: 042
     Dates: start: 20100224, end: 20100324
  5. OXALIPLATIN [Suspect]
     Indication: COLORECTAL CANCER METASTATIC
     Route: 042
     Dates: start: 20100224, end: 20100324

REACTIONS (2)
  - INTERVERTEBRAL DISC PROTRUSION [None]
  - SUBILEUS [None]
